FAERS Safety Report 20481623 (Version 7)
Quarter: 2022Q2

REPORT INFORMATION
  Report Type: Report from Study
  Country: CA (occurrence: CA)
  Receive Date: 20220216
  Receipt Date: 20220421
  Transmission Date: 20220720
  Serious: Yes (Hospitalization, Other)
  Sender: FDA-Public Use
  Company Number: CA-TAKEDA-2022TUS006568

PATIENT
  Age: 49 Year
  Sex: Male
  Weight: 56 kg

DRUGS (28)
  1. TEDUGLUTIDE [Suspect]
     Active Substance: TEDUGLUTIDE
     Indication: Short-bowel syndrome
     Dosage: 4.25 MILLIGRAM, QD
     Route: 058
     Dates: start: 20220126
  2. TEDUGLUTIDE [Suspect]
     Active Substance: TEDUGLUTIDE
     Indication: Short-bowel syndrome
     Dosage: 4.25 MILLIGRAM, QD
     Route: 058
     Dates: start: 20220126
  3. TEDUGLUTIDE [Suspect]
     Active Substance: TEDUGLUTIDE
     Indication: Short-bowel syndrome
     Dosage: 4.25 MILLIGRAM, QD
     Route: 058
     Dates: start: 20220126
  4. TEDUGLUTIDE [Suspect]
     Active Substance: TEDUGLUTIDE
     Indication: Short-bowel syndrome
     Dosage: 4.25 MILLIGRAM, QD
     Route: 058
     Dates: start: 20220126
  5. TEDUGLUTIDE [Suspect]
     Active Substance: TEDUGLUTIDE
     Indication: Crohn^s disease
     Dosage: 4.25 MILLIGRAM, QOD
     Route: 058
     Dates: start: 20220126, end: 20220228
  6. TEDUGLUTIDE [Suspect]
     Active Substance: TEDUGLUTIDE
     Indication: Crohn^s disease
     Dosage: 4.25 MILLIGRAM, QOD
     Route: 058
     Dates: start: 20220126, end: 20220228
  7. TEDUGLUTIDE [Suspect]
     Active Substance: TEDUGLUTIDE
     Indication: Crohn^s disease
     Dosage: 4.25 MILLIGRAM, QOD
     Route: 058
     Dates: start: 20220126, end: 20220228
  8. TEDUGLUTIDE [Suspect]
     Active Substance: TEDUGLUTIDE
     Indication: Crohn^s disease
     Dosage: 4.25 MILLIGRAM, QOD
     Route: 058
     Dates: start: 20220126, end: 20220228
  9. TEDUGLUTIDE [Suspect]
     Active Substance: TEDUGLUTIDE
     Dosage: 0.05 GRAM PER KILOGRAM, QD
     Route: 058
     Dates: start: 202012, end: 202102
  10. TEDUGLUTIDE [Suspect]
     Active Substance: TEDUGLUTIDE
     Dosage: 0.05 GRAM PER KILOGRAM, QD
     Route: 058
     Dates: start: 202012, end: 202102
  11. TEDUGLUTIDE [Suspect]
     Active Substance: TEDUGLUTIDE
     Dosage: 0.05 GRAM PER KILOGRAM, QD
     Route: 058
     Dates: start: 202012, end: 202102
  12. TEDUGLUTIDE [Suspect]
     Active Substance: TEDUGLUTIDE
     Dosage: 0.05 GRAM PER KILOGRAM, QD
     Route: 058
     Dates: start: 202012, end: 202102
  13. TEDUGLUTIDE [Suspect]
     Active Substance: TEDUGLUTIDE
     Dosage: 0.05 GRAM PER KILOGRAM, QD
     Route: 058
     Dates: start: 202201, end: 202201
  14. TEDUGLUTIDE [Suspect]
     Active Substance: TEDUGLUTIDE
     Dosage: 0.05 GRAM PER KILOGRAM, QD
     Route: 058
     Dates: start: 202201, end: 202201
  15. TEDUGLUTIDE [Suspect]
     Active Substance: TEDUGLUTIDE
     Dosage: 0.05 GRAM PER KILOGRAM, QD
     Route: 058
     Dates: start: 202201, end: 202201
  16. TEDUGLUTIDE [Suspect]
     Active Substance: TEDUGLUTIDE
     Dosage: 0.05 GRAM PER KILOGRAM, QD
     Route: 058
     Dates: start: 202201, end: 202201
  17. ATIVAN [Concomitant]
     Active Substance: LORAZEPAM
     Dosage: 2 MILLIGRAM
     Route: 060
  18. SYMBICORT [Concomitant]
     Active Substance: BUDESONIDE\FORMOTEROL FUMARATE DIHYDRATE
     Dosage: 200 MICROGRAM
     Route: 055
  19. BRICANYL [Concomitant]
     Active Substance: TERBUTALINE SULFATE
     Dosage: 0.5 UNK
     Route: 055
  20. ESOMEPRAZOLE [Concomitant]
     Active Substance: ESOMEPRAZOLE
     Dosage: 10 MILLIGRAM, QD
     Route: 065
  21. ZOFRAN [Concomitant]
     Active Substance: ONDANSETRON HYDROCHLORIDE
     Dosage: 8 MILLIGRAM, QD
     Route: 065
  22. BUTRANS [Concomitant]
     Active Substance: BUPRENORPHINE
     Dosage: 10 MICROGRAM, 1/WEEK
     Route: 065
  23. AMIKACIN [Concomitant]
     Active Substance: AMIKACIN
     Indication: Bladder irrigation
     Route: 065
  24. VIAGRA [Concomitant]
     Active Substance: SILDENAFIL CITRATE
     Dosage: 50 MICROGRAM
     Route: 065
  25. VIAGRA [Concomitant]
     Active Substance: SILDENAFIL CITRATE
     Dosage: 50 MILLIGRAM
     Route: 065
  26. TPN [Concomitant]
     Active Substance: AMINO ACIDS\DEXTROSE\ELECTROLYTES NOS\SOYBEAN OIL
     Dosage: 3750 MILLILITER, QD
     Route: 065
  27. DILAUDID [Concomitant]
     Active Substance: HYDROMORPHONE HYDROCHLORIDE
     Dosage: UNK UNK
     Route: 065
  28. COLCHICINE [Concomitant]
     Active Substance: COLCHICINE
     Indication: Abdominal pain
     Dosage: UNK
     Route: 065
     Dates: start: 202202

REACTIONS (20)
  - Intestinal pseudo-obstruction [Recovering/Resolving]
  - Gastrointestinal inflammation [Recovering/Resolving]
  - Synovitis [Not Recovered/Not Resolved]
  - Neurogenic bladder [Recovered/Resolved]
  - Localised infection [Recovered/Resolved]
  - Arthritis infective [Unknown]
  - Obstruction [Unknown]
  - Gastrointestinal stoma output abnormal [Not Recovered/Not Resolved]
  - Pallor [Not Recovered/Not Resolved]
  - Malaise [Not Recovered/Not Resolved]
  - Diarrhoea [Recovered/Resolved]
  - Cystitis interstitial [Recovered/Resolved]
  - Abdominal distension [Not Recovered/Not Resolved]
  - Abdominal pain [Recovered/Resolved]
  - Product preparation issue [Unknown]
  - Therapy interrupted [Unknown]
  - Increased appetite [Unknown]
  - Joint swelling [Not Recovered/Not Resolved]
  - Arthralgia [Not Recovered/Not Resolved]
  - Erythema [Not Recovered/Not Resolved]

NARRATIVE: CASE EVENT DATE: 20220127
